FAERS Safety Report 8352994-X (Version None)
Quarter: 2012Q2

REPORT INFORMATION
  Report Type: 
  Country: None (occurrence: None)
  Receive Date: 20120511
  Receipt Date: 20120502
  Transmission Date: 20120825
  Serious: Yes (Hospitalization)
  Sender: FDA-Public Use
  Company Number: FR-NOVOPROD-349968

PATIENT
  Age: 42 Year
  Sex: Male
  Weight: 82 kg

DRUGS (6)
  1. ATORVASTATIN [Concomitant]
  2. DIAMICRON [Concomitant]
     Indication: DIABETES MELLITUS
     Dosage: UNK
  3. ESCITALOPRAM [Concomitant]
  4. VICTOZA [Suspect]
     Indication: DIABETES MELLITUS
     Dosage: 0.6 MG, QD
     Route: 058
     Dates: start: 20120403, end: 20120405
  5. METFORMIN HCL [Concomitant]
     Indication: DIABETES MELLITUS
  6. ZOLPIDEM [Concomitant]

REACTIONS (2)
  - LIPASE INCREASED [None]
  - AMYLASE INCREASED [None]
